FAERS Safety Report 23575635 (Version 1)
Quarter: 2024Q1

REPORT INFORMATION
  Report Type: Spontaneous
  Country: CA (occurrence: CA)
  Receive Date: 20240228
  Receipt Date: 20240228
  Transmission Date: 20240410
  Serious: Yes (Life-Threatening, Hospitalization)
  Sender: FDA-Public Use
  Company Number: CA-TEVA-VS-3161597

PATIENT
  Age: 32 Year
  Sex: Male

DRUGS (1)
  1. PROPOFOL [Suspect]
     Active Substance: PROPOFOL
     Route: 065

REACTIONS (4)
  - Hypotension [Recovering/Resolving]
  - Myoclonus [Recovering/Resolving]
  - Pulseless electrical activity [Recovering/Resolving]
  - Resuscitation [Recovering/Resolving]
